FAERS Safety Report 6418731-0 (Version None)
Quarter: 2009Q4

REPORT INFORMATION
  Report Type: 
  Country: None (occurrence: None)
  Receive Date: 20091026
  Receipt Date: 20091014
  Transmission Date: 20100525
  Serious: Yes (Other)
  Sender: FDA-Public Use
  Company Number: 2009AC000227

PATIENT
  Sex: Female

DRUGS (1)
  1. DIGOXIN [Suspect]

REACTIONS (6)
  - ANXIETY [None]
  - DECREASED ACTIVITY [None]
  - DECREASED INTEREST [None]
  - ECONOMIC PROBLEM [None]
  - INJURY [None]
  - PAIN [None]
